FAERS Safety Report 6392115-6 (Version None)
Quarter: 2009Q4

REPORT INFORMATION
  Report Type: 
  Country: None (occurrence: None)
  Receive Date: 20091007
  Receipt Date: 20090923
  Transmission Date: 20100525
  Serious: Yes (Other)
  Sender: FDA-Public Use
  Company Number: GB-BAYER-200932292GPV

PATIENT
  Age: 66 Year
  Sex: Female

DRUGS (1)
  1. CANESTEN HC CREAM [Suspect]
     Indication: FUNGAL INFECTION
     Dates: start: 20090901

REACTIONS (4)
  - ASTHENIA [None]
  - DIZZINESS [None]
  - DYSPNOEA [None]
  - MALAISE [None]
